FAERS Safety Report 6024619-X (Version None)
Quarter: 2008Q4

REPORT INFORMATION
  Report Type: 
  Country: None (occurrence: None)
  Receive Date: 20081231
  Receipt Date: 20081222
  Transmission Date: 20090506
  Serious: Yes (Hospitalization)
  Sender: FDA-Public Use
  Company Number: DE-PFIZER INC-2008157360

PATIENT

DRUGS (10)
  1. BLINDED *PLACEBO [Suspect]
     Indication: COLORECTAL CANCER
     Dosage: UNK MG, 1X/DAY
     Route: 048
     Dates: start: 20080709
  2. BLINDED SUNITINIB MALATE [Suspect]
     Indication: COLORECTAL CANCER
     Dosage: UNK MG, 1X/DAY
     Route: 048
     Dates: start: 20080709
  3. IRINOTECAN HCL [Suspect]
     Dosage: 280 MG, EVERY 2 WEEKS
     Route: 042
     Dates: start: 20080709
  4. FLUOROURACIL [Suspect]
     Indication: COLORECTAL CANCER
     Dosage: 3770 MG, EVERY 2 WEEKS
     Route: 042
     Dates: start: 20080709
  5. FLUOROURACIL [Suspect]
     Dosage: 630 MG, EVERY 2 WEEKS
     Route: 040
     Dates: start: 20080709
  6. LEUCOVORIN CALCIUM [Suspect]
     Indication: COLORECTAL CANCER
     Dosage: 630 MG, EVERY 2 WEEKS
     Route: 042
     Dates: start: 20080709
  7. GRANISETRON [Concomitant]
     Dosage: UNK
     Dates: start: 20080709
  8. DEXAMETHASONE [Concomitant]
     Dosage: UNK
     Dates: start: 20080709
  9. ATROPIN [Concomitant]
     Dosage: UNK
     Route: 058
     Dates: start: 20080709
  10. TEMGESIC ^SCHERING-PLOUGH^ [Concomitant]
     Dosage: UNK
     Route: 062
     Dates: start: 20080401

REACTIONS (1)
  - ILEUS [None]
